FAERS Safety Report 18041886 (Version 1)
Quarter: 2020Q3

REPORT INFORMATION
  Report Type: Spontaneous
  Country: ES (occurrence: ES)
  Receive Date: 20200720
  Receipt Date: 20200720
  Transmission Date: 20201103
  Serious: Yes (Hospitalization, Other)
  Sender: FDA-Public Use
  Company Number: ES-TEVA-2020-ES-1803589

PATIENT
  Sex: Female

DRUGS (12)
  1. PACLITAXEL. [Suspect]
     Active Substance: PACLITAXEL
     Indication: INVASIVE DUCTAL BREAST CARCINOMA
     Route: 065
     Dates: end: 201401
  2. ERLOTINIB [Suspect]
     Active Substance: ERLOTINIB
     Indication: LUNG ADENOCARCINOMA
     Route: 065
  3. 5?FLUOROURACIL [Suspect]
     Active Substance: FLUOROURACIL
     Indication: INVASIVE DUCTAL BREAST CARCINOMA
     Dosage: FAC REGIMEN, RECEIVED FOUR CYCLES
     Route: 065
  4. CARBOPLATIN. [Suspect]
     Active Substance: CARBOPLATIN
     Indication: INVASIVE DUCTAL BREAST CARCINOMA
     Dosage: TCH REGIMEN, RECEIVED SIX CYCLES
     Route: 065
  5. GEMCITABINE. [Concomitant]
     Active Substance: GEMCITABINE
     Indication: INVASIVE DUCTAL BREAST CARCINOMA
     Route: 065
  6. DOCETAXEL. [Suspect]
     Active Substance: DOCETAXEL
     Indication: INVASIVE DUCTAL BREAST CARCINOMA
     Dosage: TCH REGIMEN, RECEIVED SIX CYCLES
     Route: 065
  7. ADRIAMYCIN [Suspect]
     Active Substance: DOXORUBICIN HYDROCHLORIDE
     Indication: INVASIVE DUCTAL BREAST CARCINOMA
     Dosage: FAC REGIMEN, RECEIVED FOUR CYCLES
     Route: 065
  8. TAMOXIFEN [Suspect]
     Active Substance: TAMOXIFEN
     Indication: INVASIVE DUCTAL BREAST CARCINOMA
     Dosage: HORMONAL THERAPY
     Route: 065
  9. CYCLOPHOSPHAMIDE. [Suspect]
     Active Substance: CYCLOPHOSPHAMIDE
     Indication: INVASIVE DUCTAL BREAST CARCINOMA
     Dosage: FAC REGIMEN, RECEIVED FOUR CYCLES
     Route: 065
  10. DOXORUBICIN [Suspect]
     Active Substance: DOXORUBICIN
     Route: 065
  11. ANASTROZOLE. [Suspect]
     Active Substance: ANASTROZOLE
     Indication: INVASIVE DUCTAL BREAST CARCINOMA
     Route: 065
     Dates: start: 201004
  12. TRASTUZUMAB. [Suspect]
     Active Substance: TRASTUZUMAB
     Indication: INVASIVE DUCTAL BREAST CARCINOMA
     Dosage: TCH REGIMEN, RECEIVED SIX CYCLES AND THEN MAINTENANCE THERAPY
     Route: 065
     Dates: end: 201004

REACTIONS (21)
  - Metastases to spine [Recovering/Resolving]
  - Acquired gene mutation [Recovering/Resolving]
  - HER2 gene amplification [Recovering/Resolving]
  - Glioblastoma multiforme [Recovering/Resolving]
  - Spinal cord compression [Recovering/Resolving]
  - Neurotoxicity [Recovering/Resolving]
  - Pleural effusion [Recovering/Resolving]
  - Metastases to breast [Recovering/Resolving]
  - HER2 positive breast cancer [Recovering/Resolving]
  - Lung opacity [Recovering/Resolving]
  - Rash [Unknown]
  - Metastases to bone [Recovering/Resolving]
  - Neoplasm progression [Recovering/Resolving]
  - Lung adenocarcinoma [Recovered/Resolved]
  - Metastases to pleura [Recovering/Resolving]
  - Metastases to the mediastinum [Recovered/Resolved]
  - EGFR gene mutation [Recovering/Resolving]
  - Malignant neoplasm of pleura [Recovering/Resolving]
  - Generalised tonic-clonic seizure [Recovering/Resolving]
  - Invasive ductal breast carcinoma [Recovering/Resolving]
  - Metastases to lung [Recovering/Resolving]
